FAERS Safety Report 10414649 (Version 1)
Quarter: 2014Q3

REPORT INFORMATION
  Report Type: Spontaneous
  Country: US (occurrence: US)
  Receive Date: 20140828
  Receipt Date: 20140828
  Transmission Date: 20150326
  Serious: No
  Sender: FDA-Public Use
  Company Number: US-BIOGENIDEC-2014BI085721

PATIENT
  Age: 61 Year
  Sex: Female

DRUGS (1)
  1. TECFIDERA [Suspect]
     Active Substance: DIMETHYL FUMARATE
     Indication: MULTIPLE SCLEROSIS

REACTIONS (8)
  - Urinary tract infection [Not Recovered/Not Resolved]
  - Feeling abnormal [Unknown]
  - Fatigue [Unknown]
  - Cellulitis [Unknown]
  - Lower limb fracture [Not Recovered/Not Resolved]
  - Abdominal abscess [Unknown]
  - Abscess [Unknown]
  - Breast abscess [Unknown]

NARRATIVE: CASE EVENT DATE: 2014
